FAERS Safety Report 6674540-9 (Version None)
Quarter: 2010Q2

REPORT INFORMATION
  Report Type: 
  Country: None (occurrence: None)
  Receive Date: 20100409
  Receipt Date: 20100329
  Transmission Date: 20101027
  Serious: Yes (Other)
  Sender: FDA-Public Use
  Company Number: US-PFIZER INC-2010040671

PATIENT
  Sex: Female
  Weight: 86.168 kg

DRUGS (3)
  1. ZOLOFT [Suspect]
     Indication: ANXIETY
     Dosage: UNK
  2. CYMBALTA [Suspect]
     Dosage: UNK
     Dates: start: 20100301
  3. LEXAPRO [Suspect]
     Indication: ANXIETY
     Dosage: UNK
     Dates: end: 20100301

REACTIONS (10)
  - ABDOMINAL DISCOMFORT [None]
  - ABDOMINAL PAIN UPPER [None]
  - ABNORMAL DREAMS [None]
  - ANXIETY [None]
  - CONDITION AGGRAVATED [None]
  - DIVERTICULITIS [None]
  - HALLUCINATION [None]
  - HYPERTENSION [None]
  - INSOMNIA [None]
  - MENTAL IMPAIRMENT [None]
